FAERS Safety Report 23435295 (Version 1)
Quarter: 2024Q1

REPORT INFORMATION
  Report Type: Report from Study
  Country: US (occurrence: US)
  Receive Date: 20240123
  Receipt Date: 20240123
  Transmission Date: 20240409
  Serious: Yes (Other)
  Sender: FDA-Public Use
  Company Number: US-ABBVIE-5597313

PATIENT
  Sex: Male

DRUGS (1)
  1. VENCLEXTA [Suspect]
     Active Substance: VENETOCLAX
     Indication: Acute myeloid leukaemia (in remission)
     Dosage: TAKE 5 TABLET(S) BY MOUTH (50MG) ONCE PER WEEK (SWALLOW WHOLE; DO NOT CRUSH, CHEW, OR BREAK)?FORM...
     Route: 048

REACTIONS (1)
  - Recurrent cancer [Unknown]
